FAERS Safety Report 8067418-X (Version None)
Quarter: 2012Q1

REPORT INFORMATION
  Report Type: 
  Country: None (occurrence: None)
  Receive Date: 20120124
  Receipt Date: 20120113
  Transmission Date: 20120608
  Serious: Yes (Other)
  Sender: FDA-Public Use
  Company Number: US-ABBOTT-12P-163-0894076-00

PATIENT
  Sex: Female
  Weight: 70.37 kg

DRUGS (7)
  1. PROTONIX [Concomitant]
     Indication: PRODUCT USED FOR UNKNOWN INDICATION
     Route: 048
  2. HUMIRA [Suspect]
     Route: 058
     Dates: start: 20111230, end: 20111230
  3. ATIVAN [Concomitant]
     Indication: VERTIGO
     Route: 048
  4. HUMIRA [Suspect]
     Indication: CROHN'S DISEASE
     Route: 058
     Dates: start: 20090801, end: 20100801
  5. HUMIRA [Suspect]
     Route: 058
     Dates: start: 20120113, end: 20120113
  6. DONNATAL [Concomitant]
     Indication: CROHN'S DISEASE
  7. ROBAXIN [Concomitant]
     Indication: MUSCLE RELAXANT THERAPY
     Route: 048

REACTIONS (8)
  - PHARYNGITIS STREPTOCOCCAL [None]
  - INJECTION SITE ERYTHEMA [None]
  - INJECTION SITE MASS [None]
  - CROHN'S DISEASE [None]
  - INJECTION SITE PRURITUS [None]
  - OBSTRUCTED LABOUR [None]
  - ABDOMINAL PAIN [None]
  - INJECTION SITE REACTION [None]
